FAERS Safety Report 14564226 (Version 5)
Quarter: 2018Q4

REPORT INFORMATION
  Report Type: Report from Study
  Country: US (occurrence: US)
  Receive Date: 20180222
  Receipt Date: 20181218
  Transmission Date: 20190204
  Serious: Yes (Hospitalization)
  Sender: FDA-Public Use
  Company Number: US-CELGENEUS-USA-20180205175

PATIENT
  Age: 75 Year
  Sex: Female
  Weight: 84.9 kg

DRUGS (50)
  1. PACKED RED BLOOD CELLS [Concomitant]
     Active Substance: HUMAN RED BLOOD CELL
     Indication: PRODUCT USED FOR UNKNOWN INDICATION
     Dosage: 2 UNITS
     Route: 065
     Dates: start: 20180201
  2. IPRATROPIUM BROMIDE AND ALBUTEROL SULFATE [Concomitant]
     Active Substance: ALBUTEROL SULFATE\IPRATROPIUM BROMIDE
     Indication: PRODUCT USED FOR UNKNOWN INDICATION
     Route: 065
     Dates: start: 20180203
  3. ACETYLSALICYLIC ACID [Concomitant]
     Active Substance: ASPIRIN
     Indication: PRODUCT USED FOR UNKNOWN INDICATION
     Route: 065
     Dates: start: 2015, end: 201712
  4. KETOPROFEN. [Concomitant]
     Active Substance: KETOPROFEN
     Indication: PRODUCT USED FOR UNKNOWN INDICATION
     Route: 065
     Dates: start: 20171222
  5. ACYCLOVIR. [Concomitant]
     Active Substance: ACYCLOVIR
     Indication: HERPES SIMPLEX
     Route: 041
     Dates: start: 20180208
  6. SPIRONOLACTONE. [Concomitant]
     Active Substance: SPIRONOLACTONE
     Indication: HYPERVOLAEMIA
     Dosage: 25 MILLIGRAM
     Route: 065
     Dates: start: 2018
  7. BIOTENE NOS [Concomitant]
     Active Substance: CETYLPYRIDINIUM CHLORIDE OR SODIUM FLUORIDE OR SODIUM MONOFLUOROPHOSPHATE OR GLUCOSE OXIDASE\LACTOFERRIN\LACTOPEROXIDASE BOVINE\LYSOZYME
     Indication: PRODUCT USED FOR UNKNOWN INDICATION
     Route: 065
  8. DOXYCYCLINE. [Concomitant]
     Active Substance: DOXYCYCLINE
     Indication: CELLULITIS
     Route: 065
     Dates: start: 20180204
  9. LORAZEPAM. [Concomitant]
     Active Substance: LORAZEPAM
     Indication: PRODUCT USED FOR UNKNOWN INDICATION
     Route: 065
     Dates: start: 20171219
  10. LASIX [Concomitant]
     Active Substance: FUROSEMIDE
     Dosage: 80 MILLIGRAM
     Route: 048
  11. LIDOCAINE HYDROCHLORIDE. [Concomitant]
     Active Substance: LIDOCAINE HYDROCHLORIDE
     Indication: PRODUCT USED FOR UNKNOWN INDICATION
     Route: 065
     Dates: start: 20170204
  12. ABRAXANE [Suspect]
     Active Substance: PACLITAXEL
     Indication: ADENOCARCINOMA PANCREAS
     Dosage: 125 MILLIGRAM/SQ. METER
     Route: 041
     Dates: start: 20171220
  13. ABRAXANE [Suspect]
     Active Substance: PACLITAXEL
     Dosage: 100 MILLIGRAM/SQ. METER
     Route: 041
     Dates: start: 20180228
  14. GEMCITABINE [Suspect]
     Active Substance: GEMCITABINE\GEMCITABINE HYDROCHLORIDE
     Indication: ADENOCARCINOMA PANCREAS
     Dosage: 1000 MILLIGRAM/SQ. METER
     Route: 041
     Dates: start: 20171220
  15. FILGRASTIM [Concomitant]
     Active Substance: FILGRASTIM
     Indication: PRODUCT USED FOR UNKNOWN INDICATION
     Dosage: 2 DOSAGE FORMS
     Route: 065
     Dates: start: 20180201
  16. NYSTATIN. [Concomitant]
     Active Substance: NYSTATIN
     Indication: MUCOSAL INFLAMMATION
     Route: 048
     Dates: start: 20180201
  17. LEVOFLOXACIN. [Concomitant]
     Active Substance: LEVOFLOXACIN
     Indication: STAPHYLOCOCCAL INFECTION
     Dosage: 750 MILLIGRAM
     Route: 065
     Dates: start: 20180204
  18. OXYCODONE [Concomitant]
     Active Substance: OXYCODONE
     Indication: PRODUCT USED FOR UNKNOWN INDICATION
     Route: 065
     Dates: start: 20171207
  19. FUROSEMIDE. [Concomitant]
     Active Substance: FUROSEMIDE
     Indication: PRODUCT USED FOR UNKNOWN INDICATION
     Route: 065
     Dates: start: 20170102
  20. ACYCLOVIR. [Concomitant]
     Active Substance: ACYCLOVIR
     Dosage: 285.7143 MILLIGRAM
     Route: 048
     Dates: start: 20180208
  21. LASIX [Concomitant]
     Active Substance: FUROSEMIDE
     Indication: HYPERVOLAEMIA
     Route: 041
  22. PLATELETS [Concomitant]
     Active Substance: HUMAN PLATELET, ALLOGENIC
     Indication: PRODUCT USED FOR UNKNOWN INDICATION
     Dosage: 1 UNIT
     Route: 065
     Dates: start: 20180201
  23. OXYGEN. [Concomitant]
     Active Substance: OXYGEN
     Indication: DYSPNOEA
     Dosage: 2 LITERS
     Route: 065
     Dates: start: 20180203
  24. METHYLPREDNISOLONE SODIUM SUCCINATE. [Concomitant]
     Active Substance: METHYLPREDNISOLONE SODIUM SUCCINATE
     Indication: PRODUCT USED FOR UNKNOWN INDICATION
     Route: 065
     Dates: start: 20180203
  25. DEXAMETHASONE. [Concomitant]
     Active Substance: DEXAMETHASONE
     Indication: PRODUCT USED FOR UNKNOWN INDICATION
     Route: 065
     Dates: start: 20171219
  26. MAGNESIUM OXIDE. [Concomitant]
     Active Substance: MAGNESIUM OXIDE
     Indication: PRODUCT USED FOR UNKNOWN INDICATION
     Route: 065
     Dates: start: 20170102
  27. FISH OIL [Concomitant]
     Active Substance: FISH OIL
     Indication: PRODUCT USED FOR UNKNOWN INDICATION
     Route: 065
     Dates: start: 2014
  28. MULTIVITAMINS [Concomitant]
     Active Substance: VITAMINS
     Indication: PRODUCT USED FOR UNKNOWN INDICATION
     Route: 065
     Dates: start: 2015
  29. MACROGOL 3350 [Concomitant]
     Active Substance: POLYETHYLENE GLYCOL 3350
     Indication: PRODUCT USED FOR UNKNOWN INDICATION
     Route: 065
     Dates: start: 20171222
  30. LIDOCAINE PRILOCAINE [Concomitant]
     Active Substance: LIDOCAINE\PRILOCAINE
     Indication: PRODUCT USED FOR UNKNOWN INDICATION
     Route: 065
     Dates: start: 20171219
  31. MAGIC MOUTHWASH [Concomitant]
     Active Substance: DIPHENHYDRAMINE HYDROCHLORIDE\LIDOCAINE HYDROCHLORIDE\NYSTATIN
     Indication: ORAL CANDIDIASIS
  32. PIPERACILLIN AND TAZOBACTAM [Concomitant]
     Active Substance: PIPERACILLIN SODIUM\TAZOBACTAM SODIUM
     Indication: PRODUCT USED FOR UNKNOWN INDICATION
     Route: 065
     Dates: start: 20180203
  33. COLECALCIFEROL [Concomitant]
     Active Substance: CHOLECALCIFEROL
     Indication: PRODUCT USED FOR UNKNOWN INDICATION
     Route: 065
     Dates: start: 2009
  34. TRAZODONE [Concomitant]
     Active Substance: TRAZODONE HYDROCHLORIDE
     Indication: PRODUCT USED FOR UNKNOWN INDICATION
     Route: 065
     Dates: start: 20171120
  35. ABRAXANE [Suspect]
     Active Substance: PACLITAXEL
     Dosage: 125 MILLIGRAM/SQ. METER
     Route: 041
     Dates: start: 20180126, end: 20180214
  36. GEMCITABINE [Suspect]
     Active Substance: GEMCITABINE\GEMCITABINE HYDROCHLORIDE
     Dosage: 800 MILLIGRAM/SQ. METER
     Route: 041
     Dates: start: 20180228
  37. PARACETAMOL [Concomitant]
     Active Substance: ACETAMINOPHEN
     Indication: PRODUCT USED FOR UNKNOWN INDICATION
     Route: 065
     Dates: start: 201711
  38. ONDANSETRON [Concomitant]
     Active Substance: ONDANSETRON
     Indication: PRODUCT USED FOR UNKNOWN INDICATION
     Route: 065
     Dates: start: 2014
  39. SIMVASTATIN. [Concomitant]
     Active Substance: SIMVASTATIN
     Indication: PRODUCT USED FOR UNKNOWN INDICATION
     Route: 065
     Dates: start: 2009
  40. AUGMENTIN [Concomitant]
     Active Substance: AMOXICILLIN\CLAVULANATE POTASSIUM
     Indication: PRODUCT USED FOR UNKNOWN INDICATION
     Route: 065
  41. GEMCITABINE [Suspect]
     Active Substance: GEMCITABINE\GEMCITABINE HYDROCHLORIDE
     Dosage: 1000 MILLIGRAM/SQ. METER
     Route: 041
     Dates: start: 20180126, end: 20180214
  42. CIPROFLOXACIN. [Concomitant]
     Active Substance: CIPROFLOXACIN
     Indication: PRODUCT USED FOR UNKNOWN INDICATION
     Route: 041
     Dates: start: 20180201
  43. AMIKACIN. [Concomitant]
     Active Substance: AMIKACIN
     Indication: PRODUCT USED FOR UNKNOWN INDICATION
     Route: 065
     Dates: start: 20180201
  44. MAGIC MOUTHWASH [Concomitant]
     Active Substance: DIPHENHYDRAMINE HYDROCHLORIDE\LIDOCAINE HYDROCHLORIDE\NYSTATIN
     Indication: MUCOSAL INFLAMMATION
     Route: 065
     Dates: start: 20180201
  45. NYSTATIN. [Concomitant]
     Active Substance: NYSTATIN
     Indication: ORAL CANDIDIASIS
  46. LEVOFLOXACIN. [Concomitant]
     Active Substance: LEVOFLOXACIN
     Indication: CELLULITIS
  47. DOXYCYCLINE. [Concomitant]
     Active Substance: DOXYCYCLINE
     Indication: CELLULITIS
     Route: 048
     Dates: start: 2018, end: 2018
  48. LEVOTHYROXINE. [Concomitant]
     Active Substance: LEVOTHYROXINE
     Indication: PRODUCT USED FOR UNKNOWN INDICATION
     Route: 065
     Dates: start: 2009
  49. MECLIZINE [Concomitant]
     Active Substance: MECLIZINE HYDROCHLORIDE
     Indication: PRODUCT USED FOR UNKNOWN INDICATION
     Route: 065
     Dates: start: 2009
  50. ENOXAPARIN SODIUM. [Concomitant]
     Active Substance: ENOXAPARIN SODIUM
     Indication: PRODUCT USED FOR UNKNOWN INDICATION
     Route: 065
     Dates: start: 20171219

REACTIONS (4)
  - Hypoxia [Recovered/Resolved]
  - Fatigue [Recovered/Resolved]
  - Asthenia [Recovered/Resolved]
  - Pleural effusion [Recovered/Resolved]

NARRATIVE: CASE EVENT DATE: 20180131
